FAERS Safety Report 8023395-9 (Version None)
Quarter: 2012Q1

REPORT INFORMATION
  Report Type: 
  Country: None (occurrence: None)
  Receive Date: 20120104
  Receipt Date: 20111107
  Transmission Date: 20120608
  Serious: Yes (Other)
  Sender: FDA-Public Use
  Company Number: PHEH2011US06957

PATIENT
  Age: 6 Year
  Sex: Male

DRUGS (2)
  1. TOBRAMYCIN [Suspect]
     Dosage: 300 MG, BID (28 DAYS ON AND 28 DAYS OFF)
     Dates: start: 20110901
  2. PULMOZYME [Concomitant]

REACTIONS (1)
  - UPPER RESPIRATORY TRACT INFECTION [None]
